FAERS Safety Report 6614207-6 (Version None)
Quarter: 2010Q1

REPORT INFORMATION
  Report Type: 
  Country: None (occurrence: None)
  Receive Date: 20100304
  Receipt Date: 20100223
  Transmission Date: 20100710
  Serious: Yes (Hospitalization)
  Sender: FDA-Public Use
  Company Number: CO-PFIZER INC-2010024833

PATIENT
  Age: 91 Year
  Sex: Male

DRUGS (2)
  1. NORVASC [Suspect]
     Indication: HYPERTENSION
     Dosage: 5 MG, 1X/DAY
     Route: 048
     Dates: start: 20090615
  2. HYZAAR [Concomitant]
     Indication: HYPERTENSION
     Dosage: 1 DF, 1X/DAY

REACTIONS (1)
  - HIP ARTHROPLASTY [None]
